FAERS Safety Report 13709161 (Version 1)
Quarter: 2017Q2

REPORT INFORMATION
  Report Type: Spontaneous
  Country: US (occurrence: US)
  Receive Date: 20170630
  Receipt Date: 20170630
  Transmission Date: 20170830
  Serious: No
  Sender: FDA-Public Use
  Company Number: None

PATIENT
  Age: 67 Year
  Sex: Male
  Weight: 72.9 kg

DRUGS (2)
  1. SYNTHROID [Suspect]
     Active Substance: LEVOTHYROXINE SODIUM
     Indication: HYPOTHYROIDISM
     Dosage: ?          OTHER STRENGTH:MCG;QUANTITY:1 TABLET(S);?ORAL
     Route: 048
     Dates: start: 20170630, end: 20170630
  2. AMLODIPINE [Concomitant]
     Active Substance: AMLODIPINE BESYLATE

REACTIONS (7)
  - Tremor [None]
  - Pruritus [None]
  - Dizziness [None]
  - Tinnitus [None]
  - Alopecia [None]
  - Rash [None]
  - Vision blurred [None]

NARRATIVE: CASE EVENT DATE: 20170630
